FAERS Safety Report 22041717 (Version 1)
Quarter: 2023Q1

REPORT INFORMATION
  Report Type: Spontaneous
  Country: US (occurrence: None)
  Receive Date: 20230223
  Receipt Date: 20230223
  Transmission Date: 20230418
  Serious: No
  Sender: FDA-Public Use
  Company Number: None

PATIENT

DRUGS (2)
  1. CEFDINIR [Suspect]
     Active Substance: CEFDINIR
  2. CEPHALEXIN HYDROCHLORIDE [Suspect]
     Active Substance: CEPHALEXIN HYDROCHLORIDE

REACTIONS (7)
  - Product dispensing error [None]
  - Product dispensing error [None]
  - Wrong product administered [None]
  - Incorrect dose administered [None]
  - Transcription medication error [None]
  - Product storage error [None]
  - Product distribution issue [None]
